FAERS Safety Report 4507025-6 (Version None)
Quarter: 2004Q4

REPORT INFORMATION
  Report Type: 
  Country: None (occurrence: None)
  Receive Date: 20041117
  Receipt Date: 20041109
  Transmission Date: 20050328
  Serious: Yes (Hospitalization)
  Sender: FDA-Public Use
  Company Number: 2004PK01920

PATIENT
  Age: 73 Year
  Sex: Male
  Weight: 56 kg

DRUGS (4)
  1. ZESTORETIC [Suspect]
     Indication: HYPERTENSION
     Dates: start: 20030101, end: 20040501
  2. NEXIUM [Suspect]
     Indication: GASTRIC ULCER
     Dates: start: 20040101
  3. MOBIC [Suspect]
     Indication: PAIN
     Dosage: 7.5 MG BID PO
     Route: 048
  4. ASPIRIN [Suspect]
     Indication: ATHEROSCLEROSIS
     Dosage: 100 MG DAILY PO
     Route: 048

REACTIONS (2)
  - ALVEOLITIS [None]
  - EOSINOPHILIA [None]
